FAERS Safety Report 7944231 (Version 7)
Quarter: 2014Q1

REPORT INFORMATION
  Report Type: Spontaneous
  Country: US (occurrence: US)
  Receive Date: 20110513
  Receipt Date: 20140210
  Transmission Date: 20141002
  Serious: Yes (Hospitalization, Other)
  Sender: FDA-Public Use
  Company Number: US-US-EMD SERONO, INC.-7057993

PATIENT
  Age: 61 Year
  Sex: Female
  Weight: 98 kg

DRUGS (3)
  1. REBIF [Suspect]
     Indication: MULTIPLE SCLEROSIS
     Route: 058
     Dates: start: 20090302, end: 201104
  2. REBIF [Suspect]
     Route: 058
     Dates: start: 20110902
  3. PREMARIN [Concomitant]
     Indication: PRODUCT USED FOR UNKNOWN INDICATION
     Dates: start: 1992, end: 2011

REACTIONS (6)
  - Breast cancer [Recovered/Resolved]
  - Smear cervix abnormal [Unknown]
  - Pulmonary mass [Unknown]
  - Breast disorder [Unknown]
  - White blood cell count decreased [Recovered/Resolved]
  - Injection site erythema [Recovering/Resolving]
